FAERS Safety Report 6412553-2 (Version None)
Quarter: 2009Q4

REPORT INFORMATION
  Report Type: 
  Country: None (occurrence: None)
  Receive Date: 20091023
  Receipt Date: 20091022
  Transmission Date: 20100525
  Serious: Yes (Other)
  Sender: FDA-Public Use
  Company Number: US-BRISTOL-MYERS SQUIBB COMPANY-14827679

PATIENT
  Age: 59 Year
  Sex: Male

DRUGS (4)
  1. COUMADIN [Suspect]
     Indication: MYOCARDIAL INFARCTION
     Route: 048
     Dates: start: 20081001
  2. PLAVIX [Suspect]
     Indication: MYOCARDIAL INFARCTION
     Route: 048
     Dates: start: 20081001
  3. ASPIRIN [Suspect]
     Indication: MYOCARDIAL INFARCTION
     Dosage: FORMULATION: TABS
     Route: 048
     Dates: start: 20081001
  4. CRESTOR [Concomitant]
     Indication: MYOCARDIAL INFARCTION
     Dosage: TABS
     Route: 048
     Dates: start: 20081001

REACTIONS (2)
  - INTENTIONAL DRUG MISUSE [None]
  - TESTICULAR HAEMORRHAGE [None]
